FAERS Safety Report 11476187 (Version 1)
Quarter: 2015Q3

REPORT INFORMATION
  Report Type: Spontaneous
  Country: US (occurrence: US)
  Receive Date: 20150909
  Receipt Date: 20150909
  Transmission Date: 20151125
  Serious: No
  Sender: FDA-Public Use
  Company Number: US-JAZZ-2015-US-007227

PATIENT
  Sex: Male

DRUGS (1)
  1. XYREM [Suspect]
     Active Substance: SODIUM OXYBATE
     Indication: PRODUCT USED FOR UNKNOWN INDICATION
     Dosage: 2.25 G, BID
     Route: 048
     Dates: start: 200304, end: 2003

REACTIONS (6)
  - Toothache [Unknown]
  - Headache [Unknown]
  - Dizziness [Unknown]
  - Nonspecific reaction [Unknown]
  - Vision blurred [Unknown]
  - Eye disorder [Unknown]

NARRATIVE: CASE EVENT DATE: 2003
